FAERS Safety Report 26039691 (Version 1)
Quarter: 2025Q4

REPORT INFORMATION
  Report Type: Spontaneous
  Country: EU (occurrence: EU)
  Receive Date: 20251113
  Receipt Date: 20251113
  Transmission Date: 20260118
  Serious: Yes (Other)
  Sender: CHEPLAPHARM
  Company Number: EU-CHEPLA-2024008444

PATIENT
  Age: 29 Year
  Sex: Female
  Weight: 73.8 kg

DRUGS (7)
  1. QUETIAPINE [Suspect]
     Active Substance: QUETIAPINE
     Indication: Sleep disorder
     Dosage: DAILY DOSE: 25 MILLIGRAM
  2. BISOPROLOL [Suspect]
     Active Substance: BISOPROLOL
     Indication: Tachycardia
     Dosage: DAILY DOSE: 5 MILLIGRAM
     Dates: start: 20230301, end: 20231115
  3. TRIMIPRAMINE [Suspect]
     Active Substance: TRIMIPRAMINE
     Indication: Depression
     Dosage: BEFORE PREGNANCY?DAILY DOSE: 75 MILLIGRAM
  4. TRIMIPRAMINE [Suspect]
     Active Substance: TRIMIPRAMINE
     Indication: Sleep disorder
     Dosage: BEFORE PREGNANCY?DAILY DOSE: 75 MILLIGRAM
  5. TRIMIPRAMINE [Suspect]
     Active Substance: TRIMIPRAMINE
     Indication: Depression
     Dosage: IN THE COURSE AND STOPPED AT GW 10?DAILY DOSE: 25 MILLIGRAM
  6. TRIMIPRAMINE [Suspect]
     Active Substance: TRIMIPRAMINE
     Indication: Sleep disorder
     Dosage: IN THE COURSE AND STOPPED AT GW 10?DAILY DOSE: 25 MILLIGRAM
  7. Femibion [Concomitant]
     Indication: Prophylaxis of neural tube defect

REACTIONS (4)
  - Autoimmune thyroiditis [Unknown]
  - Exposure during pregnancy [Unknown]
  - Off label use [Unknown]
  - Placental insufficiency [Unknown]
